FAERS Safety Report 13503581 (Version 1)
Quarter: 2017Q2

REPORT INFORMATION
  Report Type: Spontaneous
  Country: US (occurrence: US)
  Receive Date: 20170502
  Receipt Date: 20170502
  Transmission Date: 20170830
  Serious: No
  Sender: FDA-Public Use
  Company Number: None

PATIENT
  Age: 31 Year
  Sex: Female
  Weight: 69.75 kg

DRUGS (4)
  1. VITD [Concomitant]
  2. FLAX SEED [Concomitant]
     Active Substance: FLAX SEED
  3. VITAMIN B12 [Concomitant]
     Active Substance: CYANOCOBALAMIN
  4. COPAXONE [Suspect]
     Active Substance: GLATIRAMER ACETATE
     Indication: MULTIPLE SCLEROSIS
     Dosage: ?          QUANTITY:1 INJECTION(S);OTHER FREQUENCY:THREE TIMES WEEK;?
     Route: 058

REACTIONS (13)
  - Palpitations [None]
  - Anxiety [None]
  - Injection site pruritus [None]
  - Chest pain [None]
  - Injection site erythema [None]
  - Dyspnoea [None]
  - Chest discomfort [None]
  - Pruritus [None]
  - Pain [None]
  - Flushing [None]
  - Injection site mass [None]
  - Nausea [None]
  - Injection site urticaria [None]

NARRATIVE: CASE EVENT DATE: 20170426
